FAERS Safety Report 10034728 (Version 1)
Quarter: 2014Q1

REPORT INFORMATION
  Report Type: Spontaneous
  Country: US (occurrence: None)
  Receive Date: 20140306
  Receipt Date: 20140306
  Transmission Date: 20141002
  Serious: Yes (Other)
  Sender: FDA-Public Use
  Company Number: 163-21880-13073985

PATIENT
  Age: 87 Year
  Sex: Female

DRUGS (3)
  1. REVLIMID (LENALIDOMIDE) (10 MILLIGRAM, CAPSULES) [Suspect]
     Indication: MYELODYSPLASTIC SYNDROME
     Dosage: 21 IN 28 D
     Route: 048
     Dates: start: 20130706, end: 20130723
  2. REVLIMID (LENALIDOMIDE) (10 MILLIGRAM, CAPSULES) [Suspect]
     Indication: LEUKOCYTOSIS
     Dosage: 21 IN 28 D
     Route: 048
     Dates: start: 20130706, end: 20130723
  3. REVLIMID (LENALIDOMIDE) (10 MILLIGRAM, CAPSULES) [Suspect]
     Indication: MYELOPROLIFERATIVE DISORDER
     Dosage: 21 IN 28 D
     Route: 048
     Dates: start: 20130706, end: 20130723

REACTIONS (5)
  - Oedema peripheral [None]
  - Abasia [None]
  - Asthenia [None]
  - Epistaxis [None]
  - Abdominal pain upper [None]
